FAERS Safety Report 8568670-4 (Version None)
Quarter: 2012Q3

REPORT INFORMATION
  Report Type: 
  Country: None (occurrence: None)
  Receive Date: 20120803
  Receipt Date: 20120130
  Transmission Date: 20120928
  Serious: No
  Sender: FDA-Public Use
  Company Number: US-ABBOTT-12P-163-0898988-00

PATIENT
  Sex: Male

DRUGS (2)
  1. NIASPAN [Suspect]
     Indication: FAMILIAL RISK FACTOR
     Dosage: DID NOT TAKE CONSISTENTLY
  2. NIASPAN [Suspect]
     Dates: start: 20120128

REACTIONS (1)
  - FLUSHING [None]
